FAERS Safety Report 17359553 (Version 1)
Quarter: 2020Q1

REPORT INFORMATION
  Report Type: Spontaneous
  Country: FR (occurrence: FR)
  Receive Date: 20200203
  Receipt Date: 20200203
  Transmission Date: 20200409
  Serious: Yes (Hospitalization, Other)
  Sender: FDA-Public Use
  Company Number: FR-AUROBINDO-AUR-APL-2020-002137

PATIENT
  Age: 26 Year
  Sex: Female

DRUGS (19)
  1. OXYCODONE [Suspect]
     Active Substance: OXYCODONE
     Dosage: 3 MILLIGRAM, (BOLUS)
     Route: 065
     Dates: start: 2016
  2. OXYCODONE [Suspect]
     Active Substance: OXYCODONE
     Dosage: AND A 3 MG BOLUS DOSE; TAKING 20 BOLUS DOSE OF OXYCODONE PER DAY
     Route: 040
  3. METHADONE [Suspect]
     Active Substance: METHADONE HYDROCHLORIDE
     Dosage: INTO TWO DOSES OF 10 MG; WITH UP TO SIX SUPPLEMENTARY DOSES PER DAY OF 3 MG ON DEMAND
     Route: 065
  4. OXYCODONE [Suspect]
     Active Substance: OXYCODONE
     Indication: TUMOUR PAIN
     Dosage: (TAKING 10 BOLUSES DAILY)
     Route: 065
  5. OXYCODONE [Suspect]
     Active Substance: OXYCODONE
     Dosage: 1 MILLIGRAM, EVERY HOUR
     Route: 042
     Dates: start: 2016
  6. METHADONE [Suspect]
     Active Substance: METHADONE HYDROCHLORIDE
     Indication: TUMOUR PAIN
     Dosage: 5 MILLIGRAM, TWO TIMES A DAY
     Route: 065
  7. METHADONE [Suspect]
     Active Substance: METHADONE HYDROCHLORIDE
     Dosage: 15 MILLIGRAM, 3 TIMES A DAY
     Route: 065
  8. OXYCODONE [Suspect]
     Active Substance: OXYCODONE
     Dosage: 0.5 MILLIGRAM, EVERY HOUR
     Route: 042
     Dates: start: 201603
  9. MORPHINE [Suspect]
     Active Substance: MORPHINE
     Dosage: UNK, (TAKING 20 BOLUSES DAILY)
     Route: 065
  10. MORPHINE [Suspect]
     Active Substance: MORPHINE
     Dosage: 1 MILLIGRAM, EVERY HOUR
     Route: 042
     Dates: start: 2016
  11. OXYCODONE [Suspect]
     Active Substance: OXYCODONE
     Dosage: AT DOSES RANGING FROM 0.5 TO 1 MG/H
     Route: 042
     Dates: start: 201603
  12. MORPHINE [Suspect]
     Active Substance: MORPHINE
     Dosage: 0.5 MILLIGRAM, EVERY HOUR
     Route: 042
     Dates: start: 201603
  13. MORPHINE [Suspect]
     Active Substance: MORPHINE
     Dosage: 3 MILLIGRAM, (BOLUS)
     Route: 065
     Dates: start: 2016
  14. OXYCODONE [Suspect]
     Active Substance: OXYCODONE
     Dosage: TEN BOLUS DOSES PER DAY BY HERSELF
     Route: 040
  15. MORPHINE [Suspect]
     Active Substance: MORPHINE
     Indication: PAIN
     Dosage: UNK, (RANGING FROM 0.5 TO 1 MG/HR)
     Route: 042
     Dates: start: 2016
  16. MORPHINE [Suspect]
     Active Substance: MORPHINE
     Dosage: 200 MILLIGRAM, ONCE A DAY
     Route: 048
  17. OXYCODONE [Suspect]
     Active Substance: OXYCODONE
     Indication: PAIN
     Dosage: UNK, (TAKING 20 BOLUSES DAILY)
     Route: 065
  18. MORPHINE [Suspect]
     Active Substance: MORPHINE
     Dosage: UNK, (TAKING 10 BOLUSES DAILY)
     Route: 065
  19. MORPHINE [Suspect]
     Active Substance: MORPHINE
     Dosage: 3 MILLIGRAM, EVERY HOUR
     Route: 042
     Dates: start: 2016

REACTIONS (11)
  - Hyperhidrosis [Recovered/Resolved]
  - Abdominal pain [Recovered/Resolved]
  - Malaise [Recovered/Resolved]
  - Incorrect product administration duration [Recovered/Resolved]
  - Withdrawal syndrome [Recovered/Resolved]
  - Somnolence [Recovered/Resolved]
  - Allodynia [Recovered/Resolved]
  - Drug withdrawal syndrome [Recovered/Resolved]
  - Social avoidant behaviour [Recovered/Resolved]
  - Drug dependence [Recovered/Resolved]
  - Hyperaesthesia [Recovered/Resolved]
